FAERS Safety Report 9437158 (Version 2)
Quarter: 2013Q4

REPORT INFORMATION
  Report Type: Spontaneous
  Country: US (occurrence: US)
  Receive Date: 20130802
  Receipt Date: 20131028
  Transmission Date: 20140711
  Serious: Yes (Life-Threatening, Hospitalization)
  Sender: FDA-Public Use
  Company Number: US-BAYER-2013-093650

PATIENT
  Age: 27 Year
  Sex: Female

DRUGS (6)
  1. OCELLA [Suspect]
  2. YAZ [Suspect]
  3. YASMIN [Suspect]
     Dosage: UNK
  4. CIPROFLOXACIN [Concomitant]
     Indication: SINUSITIS
     Dosage: 50 MG, UNK
     Route: 048
     Dates: start: 20121106
  5. PREDNISONE [Concomitant]
     Dosage: 20 MG, UNK
     Route: 048
     Dates: start: 20121106
  6. HYDROCODONE/ACETAMINOPHEN [Concomitant]
     Dosage: 5-500 MG
     Dates: start: 20121106

REACTIONS (7)
  - Intracranial venous sinus thrombosis [None]
  - Injury [None]
  - Pain [None]
  - Emotional distress [None]
  - Anxiety [None]
  - Anhedonia [None]
  - Fear of disease [None]
